FAERS Safety Report 4467743-5 (Version None)
Quarter: 2004Q4

REPORT INFORMATION
  Report Type: 
  Country: None (occurrence: None)
  Receive Date: 20041001
  Receipt Date: 20040915
  Transmission Date: 20050328
  Serious: Yes (Life-Threatening)
  Sender: FDA-Public Use
  Company Number: 2004052430

PATIENT
  Age: 59 Year
  Sex: Male

DRUGS (6)
  1. ATORVASTATIN (ATORVASTATIN) [Suspect]
     Indication: HYPERLIPIDAEMIA
     Dosage: 20 MG (20 MG, 1 IN 1 D), ORAL
     Route: 048
     Dates: start: 19990514, end: 20021021
  2. ROSIGLITAZONE MALEATE [Suspect]
     Indication: DIABETES MELLITUS
     Dosage: 8 MG (8 MG, 1 IN 1 D), ORAL
     Route: 048
     Dates: start: 20010104
  3. DILTIAZEM HYDROCHLORIDE [Concomitant]
  4. METFORMIN HCL [Concomitant]
  5. QUINAPRIL HCL [Concomitant]
  6. INSULIN [Concomitant]

REACTIONS (3)
  - DRUG INTERACTION [None]
  - HEPATIC FAILURE [None]
  - HEPATIC NEOPLASM MALIGNANT [None]
